FAERS Safety Report 4449301-1 (Version None)
Quarter: 2004Q3

REPORT INFORMATION
  Report Type: 
  Country: None (occurrence: None)
  Receive Date: 20040913
  Receipt Date: 20040831
  Transmission Date: 20050211
  Serious: Yes (Death)
  Sender: FDA-Public Use
  Company Number: OMPQ-PR-0408S-1125

PATIENT
  Age: 68 Year
  Sex: Male

DRUGS (2)
  1. OMNIPAQUE 180 [Suspect]
     Indication: HYPERTENSION
     Dosage: 30 ML, SINGLE DOSE, I.V.
     Route: 042
     Dates: start: 20040819, end: 20040819
  2. OMNIPAQUE 180 [Suspect]

REACTIONS (4)
  - ANAPHYLACTIC REACTION [None]
  - CARDIO-RESPIRATORY ARREST [None]
  - CORONARY ARTERY STENOSIS [None]
  - HEPATOSPLENOMEGALY [None]
